FAERS Safety Report 15306120 (Version 7)
Quarter: 2020Q4

REPORT INFORMATION
  Report Type: Spontaneous
  Country: US (occurrence: US)
  Receive Date: 20180822
  Receipt Date: 20201020
  Transmission Date: 20210113
  Serious: Yes (Other)
  Sender: FDA-Public Use
  Company Number: US-PFIZER INC-2018336986

PATIENT
  Age: 64 Year
  Sex: Male
  Weight: 86.18 kg

DRUGS (6)
  1. CELEBREX [Suspect]
     Active Substance: CELECOXIB
     Indication: ARTHRITIS
     Dosage: 200 MG, 1X/DAY
     Dates: start: 200601
  2. CELEBREX [Suspect]
     Active Substance: CELECOXIB
     Dosage: 200 MG, 1X/DAY
     Route: 048
  3. LYRICA [Suspect]
     Active Substance: PREGABALIN
     Indication: NEUROPATHY PERIPHERAL
     Dosage: 75 MG, 3X/DAY
     Route: 048
  4. LYRICA [Suspect]
     Active Substance: PREGABALIN
     Indication: FIBROMYALGIA
     Dosage: 75 MG, 2X/DAY
     Dates: start: 200701
  5. HYDROCODONE [Concomitant]
     Active Substance: HYDROCODONE
     Dosage: UNK
  6. MORPHINE SULFATE. [Concomitant]
     Active Substance: MORPHINE SULFATE
     Dosage: UNK, 2X/DAY

REACTIONS (4)
  - Gait disturbance [Unknown]
  - Pain [Unknown]
  - Drug dependence [Unknown]
  - Withdrawal syndrome [Recovered/Resolved]

NARRATIVE: CASE EVENT DATE: 20180630
